FAERS Safety Report 16009747 (Version 1)
Quarter: 2019Q1

REPORT INFORMATION
  Report Type: Spontaneous
  Country: US (occurrence: US)
  Receive Date: 20190227
  Receipt Date: 20190227
  Transmission Date: 20190418
  Serious: No
  Sender: FDA-Public Use
  Company Number: US-SA-2019SA050954

PATIENT
  Age: 61 Year
  Sex: Male

DRUGS (1)
  1. PRALUENT [Suspect]
     Active Substance: ALIROCUMAB
     Indication: BLOOD CHOLESTEROL
     Dosage: 75 MG, QOW
     Route: 058
     Dates: start: 20190209

REACTIONS (5)
  - Lip swelling [Recovering/Resolving]
  - Mouth swelling [Recovering/Resolving]
  - Aphthous ulcer [Recovering/Resolving]
  - Aphthous ulcer [Recovered/Resolved]
  - Unevaluable event [Recovering/Resolving]

NARRATIVE: CASE EVENT DATE: 201902
